FAERS Safety Report 22601407 (Version 1)
Quarter: 2023Q2

REPORT INFORMATION
  Report Type: Spontaneous
  Country: US (occurrence: US)
  Receive Date: 20230614
  Receipt Date: 20230614
  Transmission Date: 20230722
  Serious: No
  Sender: FDA-Public Use
  Company Number: US-RIGEL Pharmaceuticals, INC-2023FOS000317

PATIENT
  Sex: Female
  Weight: 73.488 kg

DRUGS (2)
  1. TAVALISSE [Suspect]
     Active Substance: FOSTAMATINIB
     Indication: Immune thrombocytopenia
     Dosage: 100 MILLIGRAM, ONE TABLET BY MOUTH IN THE MORNING AND ONE TABLET BEFORE BEDTIME
     Route: 048
     Dates: start: 20221209
  2. TAVALISSE [Suspect]
     Active Substance: FOSTAMATINIB
     Dosage: 100 MILLIGRAM, ONE TABLET BY MOUTH IN THE MORNING
     Route: 048

REACTIONS (3)
  - Stomatitis [Recovering/Resolving]
  - Glossodynia [Recovering/Resolving]
  - Rash [Unknown]
